FAERS Safety Report 10906082 (Version 1)
Quarter: 2015Q1

REPORT INFORMATION
  Report Type: Report from Study
  Country: KR (occurrence: KR)
  Receive Date: 20150311
  Receipt Date: 20150311
  Transmission Date: 20150721
  Serious: Yes (Hospitalization, Other)
  Sender: FDA-Public Use
  Company Number: KR-GILEAD-2015-0140524

PATIENT
  Age: 45 Year
  Sex: Male
  Weight: 86.5 kg

DRUGS (8)
  1. TENOFOVIR DISOPROXIL FUMARATE [Suspect]
     Active Substance: TENOFOVIR DISOPROXIL FUMARATE
     Indication: PRODUCT USED FOR UNKNOWN INDICATION
     Dosage: 300 MG, UNK
     Route: 048
     Dates: start: 20140729
  2. URSA [Concomitant]
     Dosage: UNK
     Dates: start: 20140729
  3. GLUCOBAY M [Concomitant]
     Active Substance: ACARBOSE
     Dosage: UNK
     Dates: start: 20140729
  4. LANTUS [Concomitant]
     Active Substance: INSULIN GLARGINE
     Dosage: UNK
     Dates: start: 20140729
  5. LYRICA [Concomitant]
     Active Substance: PREGABALIN
     Dosage: 75 MG, UNK
     Dates: start: 20140729
  6. HUMULIN R [Concomitant]
     Active Substance: INSULIN HUMAN
     Dosage: UNK
     Dates: start: 20140731, end: 20140801
  7. RIVOTRIL [Concomitant]
     Active Substance: CLONAZEPAM
     Dosage: UNK
     Dates: start: 20140729
  8. DIABEX [Concomitant]
     Active Substance: METFORMIN HYDROCHLORIDE
     Dosage: UNK
     Dates: start: 20140729

REACTIONS (9)
  - Chronic gastritis [Unknown]
  - Hepatic neoplasm [Unknown]
  - Renal cyst [Unknown]
  - Diabetic neuropathy [Recovered/Resolved]
  - Dysplasia [Unknown]
  - Splenomegaly [Unknown]
  - Portal hypertensive gastropathy [Unknown]
  - Hepatic cirrhosis [Unknown]
  - Cholelithiasis [Unknown]

NARRATIVE: CASE EVENT DATE: 20140801
